FAERS Safety Report 5578777-1 (Version None)
Quarter: 2007Q4

REPORT INFORMATION
  Report Type: 
  Country: None (occurrence: None)
  Receive Date: 20071227
  Receipt Date: 20071227
  Transmission Date: 20080405
  Serious: Yes (Other)
  Sender: FDA-Public Use
  Company Number: None

PATIENT
  Sex: Male
  Weight: 74.8435 kg

DRUGS (2)
  1. CLONAZEPAM [Suspect]
     Indication: ANXIETY
     Dosage: 1MG  EVERY 8 HRS AS NEE  PO
     Route: 048
  2. CLONAZEPAM [Suspect]
     Indication: PANIC DISORDER
     Dosage: 1MG  EVERY 8 HRS AS NEE  PO
     Route: 048

REACTIONS (4)
  - DRUG INEFFECTIVE [None]
  - PALPITATIONS [None]
  - PHARMACEUTICAL PRODUCT COMPLAINT [None]
  - TREMOR [None]
